FAERS Safety Report 13030576 (Version 2)
Quarter: 2016Q4

REPORT INFORMATION
  Report Type: Report from Study
  Country: US (occurrence: US)
  Receive Date: 20161215
  Receipt Date: 20161221
  Transmission Date: 20170207
  Serious: Yes (Hospitalization, Other)
  Sender: FDA-Public Use
  Company Number: US-CELGENEUS-USA-2016122562

PATIENT
  Age: 60 Year
  Sex: Female
  Weight: 89.98 kg

DRUGS (8)
  1. AMLODIPINE BESILATE [Concomitant]
     Active Substance: AMLODIPINE BESYLATE
     Indication: HYPERTENSION
     Route: 065
     Dates: start: 19960601, end: 20150610
  2. TRIAMTERENE/ HYDROCHLOROTHIAZIDE [Concomitant]
     Indication: HYPERTENSION
     Dosage: 37.5/25 MG
     Route: 048
     Dates: start: 20150615, end: 20150620
  3. PF-04449913 [Suspect]
     Active Substance: GLASDEGIB
     Indication: LEUKAEMIA
     Dosage: 100 MG
     Route: 048
     Dates: start: 20150528, end: 20150617
  4. PF-04449913 [Suspect]
     Active Substance: GLASDEGIB
     Dosage: 100 MG
     Route: 048
     Dates: start: 20150624
  5. GRANISETRON HYDROCHLORIDE. [Concomitant]
     Active Substance: GRANISETRON HYDROCHLORIDE
     Indication: NAUSEA
     Route: 065
     Dates: start: 20150602
  6. QUINAPRIL. [Concomitant]
     Active Substance: QUINAPRIL
     Indication: HYPERTENSION
     Route: 065
     Dates: start: 19960601, end: 20150610
  7. ESCITALOPRAM OXALATE. [Concomitant]
     Active Substance: ESCITALOPRAM OXALATE
     Indication: DEPRESSION
     Route: 065
     Dates: start: 20150302
  8. VIDAZA [Suspect]
     Active Substance: AZACITIDINE
     Indication: LEUKAEMIA
     Dosage: 75 MG/M2
     Route: 058
     Dates: start: 20150527

REACTIONS (2)
  - Diverticulitis [Recovered/Resolved]
  - Febrile neutropenia [Recovered/Resolved]

NARRATIVE: CASE EVENT DATE: 20150615
